FAERS Safety Report 16428300 (Version 1)
Quarter: 2019Q2

REPORT INFORMATION
  Report Type: Report from Study
  Country: US (occurrence: US)
  Receive Date: 20190613
  Receipt Date: 20190613
  Transmission Date: 20190711
  Serious: Yes (Hospitalization)
  Sender: FDA-Public Use
  Company Number: US-ACTELION-A-NJ2018-181738

PATIENT
  Age: 1 Year
  Sex: Female

DRUGS (2)
  1. REMODULIN [Concomitant]
     Active Substance: TREPROSTINIL
  2. BOSENTAN TABLET 32 MG PED US [Suspect]
     Active Substance: BOSENTAN
     Indication: PULMONARY ARTERIAL HYPERTENSION
     Dosage: 16 MG, BID
     Route: 048

REACTIONS (5)
  - Nasal congestion [Not Recovered/Not Resolved]
  - Cardiac disorder [Unknown]
  - Fontan procedure [Unknown]
  - Rash macular [Unknown]
  - Skin irritation [Unknown]

NARRATIVE: CASE EVENT DATE: 20181028
